FAERS Safety Report 10367346 (Version 1)
Quarter: 2014Q3

REPORT INFORMATION
  Report Type: Spontaneous
  Country: GB (occurrence: None)
  Receive Date: 20140805
  Receipt Date: 20140805
  Transmission Date: 20150326
  Serious: Yes (Death, Hospitalization)
  Sender: FDA-Public Use
  Company Number: 2462607

PATIENT
  Age: 56 Year
  Sex: Male

DRUGS (1)
  1. VINCRISTINE SULFATE. [Suspect]
     Active Substance: VINCRISTINE SULFATE
     Indication: ACUTE LYMPHOCYTIC LEUKAEMIA
     Route: 037

REACTIONS (11)
  - Meningism [None]
  - Pneumonia [None]
  - Pneumothorax [None]
  - Encephalopathy [None]
  - Pollakiuria [None]
  - Incorrect dose administered [None]
  - Brain death [None]
  - Jugular vein thrombosis [None]
  - Tracheobronchitis [None]
  - Respiratory arrest [None]
  - Iatrogenic injury [None]
